FAERS Safety Report 8567806-9 (Version None)
Quarter: 2012Q3

REPORT INFORMATION
  Report Type: 
  Country: None (occurrence: None)
  Receive Date: 20120803
  Receipt Date: 20120730
  Transmission Date: 20120928
  Serious: Yes (Other)
  Sender: FDA-Public Use
  Company Number: TR-PFIZER INC-2012185244

PATIENT
  Sex: Female

DRUGS (2)
  1. ENDOL [Concomitant]
     Indication: ANKYLOSING SPONDYLITIS
     Route: 065
  2. SULFASALAZINE [Suspect]
     Indication: ANKYLOSING SPONDYLITIS
     Dosage: UNK
     Dates: start: 20050101

REACTIONS (1)
  - GASTRIC HAEMORRHAGE [None]
